FAERS Safety Report 5531076-6 (Version None)
Quarter: 2007Q4

REPORT INFORMATION
  Report Type: 
  Country: None (occurrence: None)
  Receive Date: 20071130
  Receipt Date: 20071127
  Transmission Date: 20080405
  Serious: Yes (Other)
  Sender: FDA-Public Use
  Company Number: US-BOEHRINGER INGELHEIM PHARMACEUTICALS, INC.-2007-BP-23314BP

PATIENT
  Sex: Female

DRUGS (8)
  1. MIRAPEX [Suspect]
     Indication: PARKINSON'S DISEASE
     Dates: start: 20061101
  2. ARICEPT [Suspect]
     Indication: DEMENTIA ALZHEIMER'S TYPE
     Dates: start: 20070701
  3. PAROXETINE [Concomitant]
  4. DICYCLOMINE [Concomitant]
  5. ATENOL [Concomitant]
  6. SINGULAIR [Concomitant]
  7. SIMVASTATIN [Concomitant]
  8. ENABLEX [Concomitant]

REACTIONS (7)
  - ACCIDENTAL OVERDOSE [None]
  - CONTUSION [None]
  - DEMENTIA ALZHEIMER'S TYPE [None]
  - DISORIENTATION [None]
  - FALL [None]
  - FATIGUE [None]
  - PERIORBITAL HAEMATOMA [None]
